FAERS Safety Report 7595723-X (Version None)
Quarter: 2011Q3

REPORT INFORMATION
  Report Type: 
  Country: None (occurrence: None)
  Receive Date: 20110707
  Receipt Date: 20110627
  Transmission Date: 20111222
  Serious: Yes (Other)
  Sender: FDA-Public Use
  Company Number: JP-BRISTOL-MYERS SQUIBB COMPANY-15856495

PATIENT
  Age: 57 Year
  Sex: Female

DRUGS (2)
  1. CISPLATIN [Suspect]
     Indication: GASTRIC CANCER
  2. IRINOTECAN HYDROCHLORIDE [Suspect]
     Indication: GASTRIC CANCER

REACTIONS (2)
  - DIARRHOEA [None]
  - ABDOMINAL PAIN [None]
